FAERS Safety Report 24542078 (Version 4)
Quarter: 2025Q1

REPORT INFORMATION
  Report Type: Spontaneous
  Country: HU (occurrence: HU)
  Receive Date: 20241023
  Receipt Date: 20250107
  Transmission Date: 20250408
  Serious: Yes (Other)
  Sender: ALEXION PHARMACEUTICALS
  Company Number: HU-ASTRAZENECA-202410EEA018314HU

PATIENT
  Age: 1 Day

DRUGS (4)
  1. SOLIRIS [Suspect]
     Active Substance: ECULIZUMAB
  2. SOLIRIS [Suspect]
     Active Substance: ECULIZUMAB
     Route: 064
  3. SOLIRIS [Suspect]
     Active Substance: ECULIZUMAB
  4. SOLIRIS [Suspect]
     Active Substance: ECULIZUMAB
     Route: 064

REACTIONS (3)
  - Premature baby [Unknown]
  - Foetal exposure during pregnancy [Unknown]
  - Foetal distress syndrome [Unknown]
